FAERS Safety Report 20068833 (Version 2)
Quarter: 2021Q4

REPORT INFORMATION
  Report Type: Spontaneous
  Country: CA (occurrence: CA)
  Receive Date: 20211115
  Receipt Date: 20211223
  Transmission Date: 20220304
  Serious: Yes (Death)
  Sender: FDA-Public Use
  Company Number: CA-PFIZER INC-2020143534

PATIENT
  Age: 33 Year
  Sex: Male
  Weight: 80 kg

DRUGS (39)
  1. ZIRABEV [Suspect]
     Active Substance: BEVACIZUMAB-BVZR
     Indication: Colorectal cancer metastatic
     Dosage: 415 MG, EVERY 2 WEEKS
     Route: 042
     Dates: start: 20200409
  2. ZIRABEV [Suspect]
     Active Substance: BEVACIZUMAB-BVZR
     Dosage: 415 MG, EVERY 2 WEEKS
     Route: 042
     Dates: start: 20200409
  3. ZIRABEV [Suspect]
     Active Substance: BEVACIZUMAB-BVZR
     Dosage: 5 MG/KG, EVERY 14 DAYS
     Route: 042
     Dates: start: 20200610
  4. ZIRABEV [Suspect]
     Active Substance: BEVACIZUMAB-BVZR
     Dosage: 5 MG/KG, EVERY 14 DAYS
     Route: 042
     Dates: start: 20200610
  5. ZIRABEV [Suspect]
     Active Substance: BEVACIZUMAB-BVZR
     Dosage: 5 MG/KG, EVERY 14 DAYS
     Route: 042
     Dates: start: 20200708
  6. ZIRABEV [Suspect]
     Active Substance: BEVACIZUMAB-BVZR
     Dosage: 5 MG/KG, EVERY 14 DAYS
     Route: 042
     Dates: start: 20200708
  7. ZIRABEV [Suspect]
     Active Substance: BEVACIZUMAB-BVZR
     Dosage: 5 MG/KG (410 MG), EVERY 14 DAYS
     Route: 042
     Dates: start: 20200819
  8. ZIRABEV [Suspect]
     Active Substance: BEVACIZUMAB-BVZR
     Dosage: 5 MG/KG (410 MG), EVERY 14 DAYS)
     Route: 042
     Dates: start: 20200819
  9. ZIRABEV [Suspect]
     Active Substance: BEVACIZUMAB-BVZR
     Dosage: 5 MG/KG (410 MG), EVERY 14 DAYS)
     Route: 042
     Dates: start: 20200819
  10. ZIRABEV [Suspect]
     Active Substance: BEVACIZUMAB-BVZR
     Dosage: 5 MG/KG (410 MG), EVERY 14 DAYS)
     Route: 042
     Dates: start: 20200902
  11. ZIRABEV [Suspect]
     Active Substance: BEVACIZUMAB-BVZR
     Dosage: 5 MG/KG (410 MG), EVERY 14 DAYS)
     Route: 042
     Dates: start: 20200902
  12. ZIRABEV [Suspect]
     Active Substance: BEVACIZUMAB-BVZR
     Dosage: 410 MG, EVERY 2 WEEKS
     Route: 042
     Dates: start: 20200916
  13. ZIRABEV [Suspect]
     Active Substance: BEVACIZUMAB-BVZR
     Dosage: 410 MG, EVERY 2 WEEKS
     Route: 042
     Dates: start: 20200916
  14. ZIRABEV [Suspect]
     Active Substance: BEVACIZUMAB-BVZR
     Dosage: 410 MG, EVERY 2 WEEKS
     Route: 042
     Dates: start: 20200930
  15. ZIRABEV [Suspect]
     Active Substance: BEVACIZUMAB-BVZR
     Dosage: 410 MG, EVERY 2 WEEKS
     Route: 042
     Dates: start: 20200930
  16. ZIRABEV [Suspect]
     Active Substance: BEVACIZUMAB-BVZR
     Dosage: 410 MG, EVERY 2 WEEKS
     Route: 042
     Dates: start: 20201014
  17. ZIRABEV [Suspect]
     Active Substance: BEVACIZUMAB-BVZR
     Dosage: 410 MG, EVERY 2 WEEKS
     Route: 042
     Dates: start: 20201014
  18. ZIRABEV [Suspect]
     Active Substance: BEVACIZUMAB-BVZR
     Dosage: 410 MG, EVERY 2 WEEKS
     Route: 042
     Dates: start: 20201028
  19. ZIRABEV [Suspect]
     Active Substance: BEVACIZUMAB-BVZR
     Dosage: 410 MG, EVERY 2 WEEKS
     Route: 042
     Dates: start: 20201028
  20. ZIRABEV [Suspect]
     Active Substance: BEVACIZUMAB-BVZR
     Dosage: 410 MG, EVERY 2 WEEKS
     Route: 042
     Dates: start: 20201111
  21. ZIRABEV [Suspect]
     Active Substance: BEVACIZUMAB-BVZR
     Dosage: 410 MG, EVERY 2 WEEKS
     Route: 042
     Dates: start: 20201111
  22. ZIRABEV [Suspect]
     Active Substance: BEVACIZUMAB-BVZR
     Dosage: 410 MG, EVERY 2 WEEKS
     Route: 042
     Dates: start: 20201223
  23. ZIRABEV [Suspect]
     Active Substance: BEVACIZUMAB-BVZR
     Dosage: 410 MG, EVERY 2 WEEKS
     Route: 042
     Dates: start: 20201223
  24. ZIRABEV [Suspect]
     Active Substance: BEVACIZUMAB-BVZR
     Dosage: 410 MG, EVERY 2 WEEKS
     Route: 042
     Dates: start: 20210106
  25. ZIRABEV [Suspect]
     Active Substance: BEVACIZUMAB-BVZR
     Dosage: 410 MG, EVERY 2 WEEKS
     Route: 042
     Dates: start: 20210106
  26. ZIRABEV [Suspect]
     Active Substance: BEVACIZUMAB-BVZR
     Dosage: 410 MG, EVERY 2 WEEKS
     Route: 042
     Dates: start: 20210120
  27. ZIRABEV [Suspect]
     Active Substance: BEVACIZUMAB-BVZR
     Dosage: 410 MG, EVERY 2 WEEKS
     Route: 042
     Dates: start: 20210120
  28. ZIRABEV [Suspect]
     Active Substance: BEVACIZUMAB-BVZR
     Dosage: 400 MG, EVERY 2 WEEKS
     Route: 042
     Dates: start: 20210217
  29. ZIRABEV [Suspect]
     Active Substance: BEVACIZUMAB-BVZR
     Dosage: 410 MG, EVERY 2 WEEKS
     Route: 042
     Dates: start: 20210303
  30. ZIRABEV [Suspect]
     Active Substance: BEVACIZUMAB-BVZR
     Dosage: 400 MG  EVERY 2 WEEKS
     Route: 042
     Dates: start: 20210414
  31. ZIRABEV [Suspect]
     Active Substance: BEVACIZUMAB-BVZR
     Dosage: 400 MG EVERY 2 WEEKS
     Route: 042
     Dates: start: 20210414
  32. ZIRABEV [Suspect]
     Active Substance: BEVACIZUMAB-BVZR
     Dosage: 400 MG, EVERY 2 WEEKS
     Route: 042
     Dates: start: 20210512
  33. ZIRABEV [Suspect]
     Active Substance: BEVACIZUMAB-BVZR
     Dosage: 400 MG, EVERY 2 WEEKS
     Route: 042
     Dates: start: 20210609
  34. ZIRABEV [Suspect]
     Active Substance: BEVACIZUMAB-BVZR
     Dosage: 400 MG, EVERY 2 WEEKS
     Route: 042
     Dates: start: 20210721, end: 20210721
  35. LONSURF [Concomitant]
     Active Substance: TIPIRACIL HYDROCHLORIDE\TRIFLURIDINE
     Dosage: UNK
     Route: 048
  36. HEPARIN [Concomitant]
     Active Substance: HEPARIN SODIUM
     Dosage: 5 ML
     Dates: start: 20200930, end: 20200930
  37. HEPARIN [Concomitant]
     Active Substance: HEPARIN SODIUM
     Dosage: UNK
     Dates: start: 20201111, end: 20201111
  38. HEPARIN [Concomitant]
     Active Substance: HEPARIN SODIUM
     Dosage: 500 IU IN 5ML (FLUSH)
     Dates: start: 20210217, end: 20210217
  39. PREVACID [Concomitant]
     Active Substance: LANSOPRAZOLE
     Dosage: UNK

REACTIONS (6)
  - Death [Fatal]
  - Chills [Recovered/Resolved]
  - Pyrexia [Recovered/Resolved]
  - Off label use [Unknown]
  - Intentional product use issue [Unknown]
  - Blood pressure increased [Unknown]

NARRATIVE: CASE EVENT DATE: 20200824
